FAERS Safety Report 5347412-X (Version None)
Quarter: 2007Q2

REPORT INFORMATION
  Report Type: 
  Country: None (occurrence: None)
  Receive Date: 20070507
  Receipt Date: 20060515
  Transmission Date: 20071010
  Serious: No
  Sender: FDA-Public Use
  Company Number: 2181

PATIENT
  Age: 52 Year
  Sex: Female
  Weight: 99.7913 kg

DRUGS (10)
  1. AVINZA [Suspect]
     Indication: ARACHNOIDITIS
     Dosage: 60 MG DAILY PO
     Route: 048
     Dates: start: 20051201, end: 20060401
  2. AVINZA [Suspect]
     Indication: ARACHNOIDITIS
     Dosage: 60 MG TID PO
     Route: 048
     Dates: start: 20060101
  3. AMPHETAMINE AND DEXTROAMPHETAMINE SALTS [Concomitant]
  4. BACLOFEN [Concomitant]
  5. ENOXAPARIN SODIUM [Concomitant]
  6. GLIMEPIRIDE [Concomitant]
  7. LANSOPRAZOLE [Concomitant]
  8. METFORMIN HCL [Concomitant]
  9. METOPROLOL SUCCINATE [Concomitant]
  10. VALSARTAN [Concomitant]

REACTIONS (1)
  - DRUG WITHDRAWAL SYNDROME [None]
